FAERS Safety Report 24940384 (Version 2)
Quarter: 2025Q2

REPORT INFORMATION
  Report Type: Report from Study
  Country: US (occurrence: US)
  Receive Date: 20250207
  Receipt Date: 20250505
  Transmission Date: 20250716
  Serious: Yes (Hospitalization, Other)
  Sender: TAKEDA
  Company Number: US-TAKEDA-2025TUS012822

PATIENT
  Sex: Female

DRUGS (2)
  1. MARIBAVIR [Suspect]
     Active Substance: MARIBAVIR
     Indication: Cytomegalovirus infection
     Dosage: 400 MILLIGRAM, BID
  2. MARIBAVIR [Suspect]
     Active Substance: MARIBAVIR
     Dosage: 400 MILLIGRAM, BID

REACTIONS (4)
  - Clostridium difficile infection [Unknown]
  - COVID-19 [Unknown]
  - Pain in extremity [Unknown]
  - Depression [Unknown]
